FAERS Safety Report 25756089 (Version 1)
Quarter: 2025Q3

REPORT INFORMATION
  Report Type: Report from Study
  Country: US (occurrence: US)
  Receive Date: 20250903
  Receipt Date: 20250903
  Transmission Date: 20251021
  Serious: Yes (Hospitalization)
  Sender: PFIZER
  Company Number: US-PFIZER INC-PV202500103912

PATIENT
  Age: 37 Year
  Sex: Female

DRUGS (4)
  1. IBRANCE [Suspect]
     Active Substance: PALBOCICLIB
     Indication: Breast cancer female
     Dates: start: 2024
  2. IBRANCE [Suspect]
     Active Substance: PALBOCICLIB
     Route: 048
     Dates: end: 202506
  3. LUPRON [Concomitant]
     Active Substance: LEUPROLIDE ACETATE
  4. LETROZOLE [Concomitant]
     Active Substance: LETROZOLE

REACTIONS (7)
  - Skin infection [Unknown]
  - Skin disorder [Unknown]
  - Blood test abnormal [Unknown]
  - Stomatitis [Unknown]
  - Headache [Unknown]
  - Fatigue [Unknown]
  - Dermatitis contact [Unknown]

NARRATIVE: CASE EVENT DATE: 20240101
